FAERS Safety Report 9977169 (Version 1)
Quarter: 2014Q1

REPORT INFORMATION
  Report Type: Report from Study
  Country: US (occurrence: US)
  Receive Date: 20140306
  Receipt Date: 20140306
  Transmission Date: 20141002
  Serious: No
  Sender: FDA-Public Use
  Company Number: US-ABBVIE-13P-163-1163840-00

PATIENT
  Sex: Female

DRUGS (10)
  1. HUMIRA [Suspect]
     Indication: PSORIATIC ARTHROPATHY
  2. METHOTREXATE [Concomitant]
     Indication: PSORIATIC ARTHROPATHY
  3. METHOTREXATE [Concomitant]
     Dosage: GETS 1.0 CC INJECTIONS
  4. ASPIRIN [Concomitant]
     Indication: PRODUCT USED FOR UNKNOWN INDICATION
  5. METOPROLOL [Concomitant]
     Indication: ATRIAL FIBRILLATION
  6. DILITIAZEM [Concomitant]
     Indication: ATRIAL FIBRILLATION
  7. MELOXICAM [Concomitant]
     Indication: PRODUCT USED FOR UNKNOWN INDICATION
  8. LYRICA [Concomitant]
     Indication: FIBROMYALGIA
  9. ZOLOFT [Concomitant]
     Indication: PANIC ATTACK
     Dosage: 100 MG DAILY
  10. AMBIEN [Concomitant]
     Indication: PRODUCT USED FOR UNKNOWN INDICATION
     Dosage: AT NIGHT

REACTIONS (6)
  - Pain [Unknown]
  - Injection site pain [Recovering/Resolving]
  - Urinary tract infection [Unknown]
  - Psoriatic arthropathy [Unknown]
  - Neck pain [Unknown]
  - Device malfunction [Unknown]
